FAERS Safety Report 16539386 (Version 3)
Quarter: 2019Q3

REPORT INFORMATION
  Report Type: Spontaneous
  Country: US (occurrence: US)
  Receive Date: 20190708
  Receipt Date: 20190819
  Transmission Date: 20191004
  Serious: Yes (Death, Hospitalization, Other)
  Sender: FDA-Public Use
  Company Number: US-PFIZER INC-2019285989

PATIENT
  Age: 89 Year
  Sex: Female
  Weight: 62.13 kg

DRUGS (7)
  1. ATENOLOL. [Concomitant]
     Active Substance: ATENOLOL
     Indication: BLOOD PRESSURE ABNORMAL
     Dosage: UNK, 1X/DAY
     Dates: end: 20190524
  2. SYNTHROID [Concomitant]
     Active Substance: LEVOTHYROXINE SODIUM
     Indication: HYPOTHYROIDISM
     Dosage: UNK, 1X/DAY
     Dates: end: 20190524
  3. DEXAMETHASONE. [Concomitant]
     Active Substance: DEXAMETHASONE
     Dosage: 0.5 MG, DAILY
  4. AMLODIPINE [Concomitant]
     Active Substance: AMLODIPINE BESYLATE
     Indication: HYPERTENSION
     Dosage: UNK, 1X/DAY
     Dates: end: 20190524
  5. DEXAMETHASONE. [Concomitant]
     Active Substance: DEXAMETHASONE
     Indication: BRAIN OEDEMA
     Dosage: UNK (TAPERING DOSE)
  6. XALKORI [Suspect]
     Active Substance: CRIZOTINIB
     Indication: LUNG CARCINOMA CELL TYPE UNSPECIFIED STAGE IV
     Dosage: 250 MG, TWICE A DAY
     Route: 048
     Dates: start: 20190401, end: 20190524
  7. ATENOLOL. [Concomitant]
     Active Substance: ATENOLOL
     Indication: HYPERTENSION

REACTIONS (5)
  - Pulmonary embolism [Not Recovered/Not Resolved]
  - Death [Fatal]
  - Swelling [Not Recovered/Not Resolved]
  - Oedema peripheral [Unknown]
  - Thrombosis [Unknown]

NARRATIVE: CASE EVENT DATE: 201904
